FAERS Safety Report 7842262-4 (Version None)
Quarter: 2011Q4

REPORT INFORMATION
  Report Type: 
  Country: None (occurrence: None)
  Receive Date: 20111019
  Receipt Date: 20111006
  Transmission Date: 20120403
  Serious: Yes (Other)
  Sender: FDA-Public Use
  Company Number: 2011SP047163

PATIENT
  Age: 37 Year
  Sex: Male

DRUGS (4)
  1. ATAZANAVIR [Concomitant]
  2. NORVIR [Concomitant]
  3. TRUVADA [Concomitant]
  4. VICTRELIS [Suspect]
     Indication: HEPATITIS C
     Dates: start: 20110101

REACTIONS (1)
  - HYPERTRIGLYCERIDAEMIA [None]
